FAERS Safety Report 8194140-1 (Version None)
Quarter: 2012Q1

REPORT INFORMATION
  Report Type: 
  Country: None (occurrence: None)
  Receive Date: 20120308
  Receipt Date: 20120227
  Transmission Date: 20120608
  Serious: Yes (Hospitalization)
  Sender: FDA-Public Use
  Company Number: DK-ABBOTT-12P-044-0909296-01

PATIENT
  Sex: Female

DRUGS (8)
  1. MAGNESIA [Concomitant]
     Indication: CONSTIPATION
     Dates: start: 20110202
  2. DUSPATALIN [Concomitant]
     Indication: GASTROINTESTINAL PAIN
     Dates: start: 20110207
  3. PREDNISOLONE [Concomitant]
     Indication: GASTROINTESTINAL DISORDER
     Dates: start: 20110202, end: 20110311
  4. CORTICOSTEROIDS [Concomitant]
     Indication: PRODUCT USED FOR UNKNOWN INDICATION
  5. HUMIRA [Suspect]
     Dosage: 80MG (WEEK 2)
     Route: 058
  6. PAMOL [Concomitant]
     Indication: ABDOMINAL PAIN UPPER
     Dates: start: 20110202
  7. HUMIRA [Suspect]
     Indication: CROHN'S DISEASE
     Dosage: BASELINE
     Route: 058
     Dates: start: 20081002, end: 20081002
  8. HUMIRA [Suspect]
     Route: 058
     Dates: end: 20110125

REACTIONS (1)
  - CROHN'S DISEASE [None]
